FAERS Safety Report 9690422 (Version 1)
Quarter: 2013Q4

REPORT INFORMATION
  Report Type: Spontaneous
  Country: JP (occurrence: JP)
  Receive Date: 20131115
  Receipt Date: 20131115
  Transmission Date: 20140711
  Serious: Yes (Hospitalization)
  Sender: FDA-Public Use
  Company Number: US-ASTRAZENECA-2013SE83799

PATIENT
  Age: 0 Day
  Sex: Female
  Weight: 2.4 kg

DRUGS (2)
  1. BLOPRESS [Suspect]
     Route: 064
     Dates: end: 20130809
  2. METGLUCO [Concomitant]
     Route: 064
     Dates: end: 20130809

REACTIONS (5)
  - Osteogenesis imperfecta [Unknown]
  - Cleft lip and palate [Unknown]
  - Low birth weight baby [Unknown]
  - Hearing impaired [Unknown]
  - Patent ductus arteriosus [Unknown]
